FAERS Safety Report 19856120 (Version 1)
Quarter: 2021Q3

REPORT INFORMATION
  Report Type: Spontaneous
  Country: CA (occurrence: CA)
  Receive Date: 20210920
  Receipt Date: 20210920
  Transmission Date: 20211014
  Serious: Yes (Life-Threatening, Hospitalization)
  Sender: FDA-Public Use
  Company Number: CA-TEVA-2021-CA-1954257

PATIENT
  Age: 89 Year
  Sex: Female

DRUGS (8)
  1. TRANDOLAPRIL. [Concomitant]
     Active Substance: TRANDOLAPRIL
  2. TYLENOL [Concomitant]
     Active Substance: ACETAMINOPHEN
  3. CALCIUM + VITAMIN D [Concomitant]
     Active Substance: CALCIUM\VITAMIN D
  4. NORVASC [Concomitant]
     Active Substance: AMLODIPINE BESYLATE
  5. HYDROCHLOROTHIAZIDE. [Suspect]
     Active Substance: HYDROCHLOROTHIAZIDE
     Dosage: 25 MILLIGRAM DAILY;
     Route: 048
  6. VENLAFAXINE XR [Concomitant]
     Active Substance: VENLAFAXINE HYDROCHLORIDE
  7. PANTOLOC [Concomitant]
     Active Substance: PANTOPRAZOLE SODIUM
  8. ATIVAN [Concomitant]
     Active Substance: LORAZEPAM

REACTIONS (3)
  - Asthenia [Unknown]
  - Hyponatraemia [Unknown]
  - Decreased appetite [Unknown]
